FAERS Safety Report 10248580 (Version 1)
Quarter: 2014Q2

REPORT INFORMATION
  Report Type: Spontaneous
  Country: US (occurrence: None)
  Receive Date: 20140617
  Receipt Date: 20140617
  Transmission Date: 20141212
  Serious: Yes (Other)
  Sender: FDA-Public Use
  Company Number: None

PATIENT
  Age: 54 Year
  Sex: Male
  Weight: 90.9 kg

DRUGS (3)
  1. CLOPIDOGREL [Suspect]
     Indication: CEREBROVASCULAR STENOSIS
     Route: 048
     Dates: start: 201211, end: 20140519
  2. CLOPIDOGREL [Suspect]
     Indication: CAROTID ARTERY STENT INSERTION
     Route: 048
     Dates: start: 201211, end: 20140519
  3. BRILINTA [Concomitant]

REACTIONS (4)
  - Headache [None]
  - Dizziness [None]
  - Balance disorder [None]
  - Dyspnoea [None]
